FAERS Safety Report 16081746 (Version 1)
Quarter: 2019Q1

REPORT INFORMATION
  Report Type: Report from Study
  Country: PK (occurrence: PK)
  Receive Date: 20190316
  Receipt Date: 20190316
  Transmission Date: 20190418
  Serious: Yes (Hospitalization)
  Sender: FDA-Public Use
  Company Number: PHHY2019PK057741

PATIENT
  Age: 26 Year
  Sex: Male

DRUGS (2)
  1. SANDIMMUNE NEORAL [Suspect]
     Active Substance: CYCLOSPORINE
     Dosage: 3 DF, BID
     Route: 048
  2. SANDIMMUNE NEORAL [Suspect]
     Active Substance: CYCLOSPORINE
     Indication: PRODUCT USED FOR UNKNOWN INDICATION
     Dosage: 5 DF, QD (2 TAB IN MORNING + 3 TAB IN EVENING)
     Route: 048
     Dates: start: 20160603

REACTIONS (2)
  - Depressed mood [Not Recovered/Not Resolved]
  - Hypoaesthesia [Not Recovered/Not Resolved]

NARRATIVE: CASE EVENT DATE: 20181008
